FAERS Safety Report 5799239-2 (Version None)
Quarter: 2008Q3

REPORT INFORMATION
  Report Type: 
  Country: None (occurrence: None)
  Receive Date: 20080702
  Receipt Date: 20080526
  Transmission Date: 20090109
  Serious: Yes (Hospitalization)
  Sender: FDA-Public Use
  Company Number: JP-PFIZER INC-2008027841

PATIENT
  Sex: Male

DRUGS (4)
  1. MIGLITOL TABLET [Suspect]
     Indication: DIABETES MELLITUS
     Dosage: DAILY DOSE:50MG
     Route: 048
     Dates: start: 20080120, end: 20080227
  2. NEOSHINJI-S [Suspect]
     Route: 048
  3. LANTUS [Concomitant]
     Route: 058
  4. HUMALOG [Concomitant]
     Route: 058
     Dates: start: 20080110

REACTIONS (5)
  - ANOREXIA [None]
  - CHROMATURIA [None]
  - JAUNDICE [None]
  - LIVER DISORDER [None]
  - MALAISE [None]
